FAERS Safety Report 9960108 (Version 2)
Quarter: 2014Q1

REPORT INFORMATION
  Report Type: Report from Study
  Country: US (occurrence: US)
  Receive Date: 20140305
  Receipt Date: 20140305
  Transmission Date: 20141002
  Serious: Yes (Other)
  Sender: FDA-Public Use
  Company Number: US-ABBVIE-13P-163-1062627-00

PATIENT
  Age: 41 Year
  Sex: Male
  Weight: 88.98 kg

DRUGS (5)
  1. HUMIRA [Suspect]
     Indication: COLITIS ULCERATIVE
     Dates: start: 20100702, end: 20130401
  2. ASACOL [Concomitant]
     Indication: COLITIS
  3. UNKNOWN BLOOD PRESSURE MEDICATION [Concomitant]
     Indication: HYPERTENSION
  4. UNKNOWN BLOOD PRESSURE MEDICATION [Concomitant]
     Indication: BLOOD CHOLESTEROL INCREASED
  5. UNKNOWN HIGH CHOLESTEROL MEDICATION [Concomitant]
     Indication: BLOOD CHOLESTEROL INCREASED

REACTIONS (4)
  - Fall [Recovering/Resolving]
  - Lower limb fracture [Recovering/Resolving]
  - Impaired healing [Recovering/Resolving]
  - Drug dose omission [Unknown]
